FAERS Safety Report 4562643-4 (Version None)
Quarter: 2005Q1

REPORT INFORMATION
  Report Type: 
  Country: None (occurrence: None)
  Receive Date: 20050127
  Receipt Date: 20050117
  Transmission Date: 20050727
  Serious: Yes (Other)
  Sender: FDA-Public Use
  Company Number: DE-JNJFOC-20050104087

PATIENT
  Age: 52 Year
  Sex: Female

DRUGS (2)
  1. RISPERDAL [Suspect]
     Route: 049
  2. ATOSIL [Suspect]
     Indication: RESTLESSNESS

REACTIONS (1)
  - LEUKOPENIA [None]
